FAERS Safety Report 10280099 (Version 4)
Quarter: 2014Q3

REPORT INFORMATION
  Report Type: Spontaneous
  Country: US (occurrence: US)
  Receive Date: 20140707
  Receipt Date: 20140807
  Transmission Date: 20150326
  Serious: Yes (Other)
  Sender: FDA-Public Use
  Company Number: US-SA-2014SA085406

PATIENT
  Age: 34 Year
  Sex: Female

DRUGS (2)
  1. SOLOSTAR [Concomitant]
     Active Substance: DEVICE
  2. LANTUS SOLOSTAR [Suspect]
     Active Substance: INSULIN GLARGINE
     Indication: TYPE 2 DIABETES MELLITUS
     Dosage: DOSE:10 UNIT(S)
     Route: 065

REACTIONS (7)
  - Nephrolithiasis [Unknown]
  - Malaise [Unknown]
  - Abdominal pain upper [Unknown]
  - Decreased appetite [Unknown]
  - Loss of consciousness [Unknown]
  - Feeling abnormal [Unknown]
  - Schizophrenia [Unknown]

NARRATIVE: CASE EVENT DATE: 201406
